FAERS Safety Report 11700636 (Version 2)
Quarter: 2015Q4

REPORT INFORMATION
  Report Type: Spontaneous
  Country: US (occurrence: US)
  Receive Date: 20151105
  Receipt Date: 20151109
  Transmission Date: 20160304
  Serious: Yes (Hospitalization, Other)
  Sender: FDA-Public Use
  Company Number: US-BAYER-2015-454817

PATIENT
  Sex: Female

DRUGS (1)
  1. ALEVE [Suspect]
     Active Substance: NAPROXEN SODIUM
     Indication: HEADACHE
     Dosage: 1 DF, ONCE

REACTIONS (8)
  - Skin discolouration [None]
  - Anxiety [Recovered/Resolved]
  - Drug hypersensitivity [None]
  - Sinus congestion [None]
  - Blindness [None]
  - Pharyngeal oedema [None]
  - Swollen tongue [None]
  - Dyspnoea [None]
